FAERS Safety Report 5097528-0 (Version None)
Quarter: 2006Q3

REPORT INFORMATION
  Report Type: 
  Country: None (occurrence: None)
  Receive Date: 20060901
  Receipt Date: 20060829
  Transmission Date: 20061208
  Serious: Yes (Hospitalization)
  Sender: FDA-Public Use
  Company Number: A001-233-824

PATIENT
  Age: 61 Year
  Sex: Female
  Weight: 63.8 kg

DRUGS (5)
  1. DONEPEZIL HCL [Suspect]
     Indication: CEREBRAL AUTOSOMAL DOMINANT ARTERIOPATHY WITH SUBCORTICAL INFARCTS AND LEUKOENCEPHALOPATHY
     Dosage: 5 MG, 1 IN 1 D, ORAL
     Route: 048
     Dates: start: 20050524, end: 20050618
  2. ASPIRIN [Concomitant]
  3. ESTRADIOL/PROGESTERONE (ESTRADIOL) [Concomitant]
  4. CALCIUM CARBONATE (CALCIUM CARBONATE) [Concomitant]
  5. MULTIVITAMIN [Concomitant]

REACTIONS (17)
  - ABASIA [None]
  - APNOEIC ATTACK [None]
  - CEREBRAL INFARCTION [None]
  - COGNITIVE DISORDER [None]
  - COMA [None]
  - COMPUTERISED TOMOGRAM ABNORMAL [None]
  - DISORIENTATION [None]
  - DIZZINESS [None]
  - DYSPHONIA [None]
  - EPILEPSY [None]
  - EXTENSOR PLANTAR RESPONSE [None]
  - HALLUCINATION, VISUAL [None]
  - HEART RATE INCREASED [None]
  - HYPERKINESIA [None]
  - INAPPROPRIATE AFFECT [None]
  - RHABDOMYOLYSIS [None]
  - SPEECH DISORDER [None]
